FAERS Safety Report 4998925-1 (Version None)
Quarter: 2006Q2

REPORT INFORMATION
  Report Type: 
  Country: None (occurrence: None)
  Receive Date: 20060509
  Receipt Date: 20040621
  Transmission Date: 20061013
  Serious: Yes (Hospitalization, Other)
  Sender: FDA-Public Use
  Company Number: 2004041807

PATIENT
  Age: 61 Year
  Sex: Male
  Weight: 104.3273 kg

DRUGS (6)
  1. TIKOSYN [Suspect]
     Indication: ATRIAL FLUTTER
     Dosage: 1000 MCG (500 MCG, 2 IN 1 D), ORAL
     Route: 048
     Dates: start: 20010430
  2. OMEPRAZOLE [Concomitant]
  3. LISINOPRIL [Concomitant]
  4. ATENOLOL [Concomitant]
  5. TERAZOSIN HYDROCHLORIDE [Concomitant]
  6. ASPIRIN [Concomitant]

REACTIONS (3)
  - HIP ARTHROPLASTY [None]
  - INCISION SITE HAEMATOMA [None]
  - INCISION SITE OEDEMA [None]
